FAERS Safety Report 24741065 (Version 1)
Quarter: 2024Q4

REPORT INFORMATION
  Report Type: Spontaneous
  Country: TH (occurrence: TH)
  Receive Date: 20241217
  Receipt Date: 20241217
  Transmission Date: 20250115
  Serious: Yes (Hospitalization, Other)
  Sender: GLAXOSMITHKLINE
  Company Number: TH-GSK-TH2024GSK156723

PATIENT

DRUGS (12)
  1. BUPROPION HYDROCHLORIDE XL [Suspect]
     Active Substance: BUPROPION HYDROCHLORIDE
     Indication: Major depression
     Dosage: 8700 MG (29 TABLETS OF 300 MG)
     Route: 048
  2. LEVETIRACETAM [Suspect]
     Active Substance: LEVETIRACETAM
     Indication: Generalised tonic-clonic seizure
     Dosage: 2500 MG
     Route: 040
  3. LEVETIRACETAM [Suspect]
     Active Substance: LEVETIRACETAM
     Dosage: 1000 MG, 1D
     Route: 040
  4. DIAZEPAM [Suspect]
     Active Substance: DIAZEPAM
     Indication: Generalised tonic-clonic seizure
     Dosage: 10 MG, BID
     Route: 040
  5. DIAZEPAM [Suspect]
     Active Substance: DIAZEPAM
     Dosage: 70 MG TOTAL DOSES (BOLUS)
     Route: 040
  6. MIDAZOLAM [Suspect]
     Active Substance: MIDAZOLAM
     Indication: Generalised tonic-clonic seizure
     Dosage: 10 MG
     Route: 040
  7. MIDAZOLAM [Suspect]
     Active Substance: MIDAZOLAM
     Indication: Sedation
     Dosage: 10 MG PER HOUR
     Route: 040
  8. PHENYTOIN [Suspect]
     Active Substance: PHENYTOIN
     Indication: Generalised tonic-clonic seizure
     Dosage: 1000 MG
     Route: 040
  9. PHENYTOIN [Suspect]
     Active Substance: PHENYTOIN
     Dosage: 300 MG, 1D
     Route: 040
  10. PROPOFOL [Suspect]
     Active Substance: PROPOFOL
     Indication: Generalised tonic-clonic seizure
     Dosage: 100 MG
     Route: 040
  11. PROPOFOL [Suspect]
     Active Substance: PROPOFOL
     Dosage: 100 MG PER HOUR
     Route: 040
  12. FENTANYL [Concomitant]
     Active Substance: FENTANYL
     Indication: Sedative therapy
     Dosage: 100 UG PER HOUR

REACTIONS (4)
  - Toxicity to various agents [Unknown]
  - Suicide attempt [Unknown]
  - Intentional overdose [Unknown]
  - Drug ineffective [Unknown]
